FAERS Safety Report 4536087-5 (Version None)
Quarter: 2004Q4

REPORT INFORMATION
  Report Type: 
  Country: None (occurrence: None)
  Receive Date: 20041223
  Receipt Date: 20041217
  Transmission Date: 20050328
  Serious: Yes (Death, Other)
  Sender: FDA-Public Use
  Company Number: US-BRISTOL-MYERS SQUIBB COMPANY-12800082

PATIENT
  Age: 17 Year
  Sex: Male

DRUGS (3)
  1. STADOL [Suspect]
     Indication: MIGRAINE
     Route: 045
     Dates: start: 20000101
  2. PAXIL [Concomitant]
  3. BENADRYL [Concomitant]

REACTIONS (2)
  - DEATH [None]
  - DEPENDENCE [None]
